FAERS Safety Report 7809958-1 (Version None)
Quarter: 2011Q4

REPORT INFORMATION
  Report Type: 
  Country: None (occurrence: None)
  Receive Date: 20111012
  Receipt Date: 20110930
  Transmission Date: 20120403
  Serious: Yes (Other)
  Sender: FDA-Public Use
  Company Number: PHHY2011CA73329

PATIENT
  Sex: Female

DRUGS (3)
  1. VITAMIN D [Concomitant]
     Dosage: UNK
  2. GABAPENTIN [Concomitant]
     Dosage: UNK
  3. GILENYA [Suspect]
     Indication: RELAPSING-REMITTING MULTIPLE SCLEROSIS
     Dosage: 0.5 MG, DAILY
     Route: 048
     Dates: start: 20110511

REACTIONS (2)
  - BRONCHITIS [None]
  - VISUAL FIELD DEFECT [None]
